FAERS Safety Report 8266064-2 (Version None)
Quarter: 2012Q1

REPORT INFORMATION
  Report Type: 
  Country: None (occurrence: None)
  Receive Date: 20120327
  Receipt Date: 20090929
  Transmission Date: 20120608
  Serious: Yes (Other)
  Sender: FDA-Public Use
  Company Number: PHEH2009US12812

PATIENT
  Sex: Female

DRUGS (5)
  1. PEPCID [Concomitant]
  2. GLEEVEC [Suspect]
     Indication: MYELOID LEUKAEMIA
     Dosage: 300 MG, QD, ORAL     600 MG, QD, ORAL
     Route: 048
     Dates: start: 20030201
  3. TRIAMTERENE AND HYDROCHLOROTHIAZID ^HARRIS^ (HYDROCHLOROTHIAZIDE, TRIA [Concomitant]
  4. POTASSIUM CHLORIDE [Concomitant]
  5. PRAVACHOL [Concomitant]

REACTIONS (4)
  - DIARRHOEA [None]
  - DISEASE PROGRESSION [None]
  - MUSCLE SPASMS [None]
  - SKIN DEPIGMENTATION [None]
